FAERS Safety Report 17824791 (Version 1)
Quarter: 2020Q2

REPORT INFORMATION
  Report Type: Spontaneous
  Country: US (occurrence: US)
  Receive Date: 20200526
  Receipt Date: 20200526
  Transmission Date: 20200714
  Serious: No
  Sender: FDA-Public Use
  Company Number: None

PATIENT
  Age: 66 Year
  Sex: Male
  Weight: 54.9 kg

DRUGS (10)
  1. BENADRYL [Concomitant]
     Active Substance: DIPHENHYDRAMINE HYDROCHLORIDE
  2. VITAMIN B12 [Concomitant]
     Active Substance: CYANOCOBALAMIN
  3. KEPPRA [Concomitant]
     Active Substance: LEVETIRACETAM
  4. CARBOPLATIN. [Concomitant]
     Active Substance: CARBOPLATIN
  5. PROCHLORPERAZINE. [Concomitant]
     Active Substance: PROCHLORPERAZINE
  6. AKYNZEO [Suspect]
     Active Substance: NETUPITANT\PALONOSETRON HYDROCHLORIDE
     Indication: LUNG NEOPLASM MALIGNANT
     Route: 042
     Dates: start: 20200217, end: 20200526
  7. ALIMTA [Concomitant]
     Active Substance: PEMETREXED DISODIUM
  8. FOLIC ACID. [Concomitant]
     Active Substance: FOLIC ACID
  9. KEYTRUDA [Concomitant]
     Active Substance: PEMBROLIZUMAB
  10. OXYCODONE [Concomitant]
     Active Substance: OXYCODONE

REACTIONS (1)
  - Death [None]

NARRATIVE: CASE EVENT DATE: 20200526
